FAERS Safety Report 5651825-6 (Version None)
Quarter: 2008Q1

REPORT INFORMATION
  Report Type: 
  Country: None (occurrence: None)
  Receive Date: 20080305
  Receipt Date: 20080226
  Transmission Date: 20080703
  Serious: Yes (Hospitalization, Other)
  Sender: FDA-Public Use
  Company Number: BR-PFIZER INC-2008001769

PATIENT
  Sex: Female
  Weight: 77 kg

DRUGS (6)
  1. FRONTAL XR [Suspect]
     Indication: MENOPAUSE
     Route: 048
  2. DIMENHYDRINATE [Concomitant]
     Route: 048
  3. AMLODIPINE [Concomitant]
     Route: 048
  4. ALL OTHER THERAPEUTIC PRODUCTS [Concomitant]
  5. CLUSIVOL [Concomitant]
  6. DULOXETINE [Concomitant]

REACTIONS (9)
  - BLOOD PRESSURE INCREASED [None]
  - BONE PAIN [None]
  - CHOLELITHIASIS [None]
  - MALAISE [None]
  - PAIN [None]
  - PYREXIA [None]
  - SLEEP DISORDER [None]
  - TONSILLAR DISORDER [None]
  - YELLOW SKIN [None]
